FAERS Safety Report 9365144 (Version 1)
Quarter: 2013Q2

REPORT INFORMATION
  Report Type: Spontaneous
  Country: SE (occurrence: SE)
  Receive Date: 20130624
  Receipt Date: 20130624
  Transmission Date: 20140414
  Serious: Yes (Other)
  Sender: FDA-Public Use
  Company Number: PHHY2013SE063125

PATIENT
  Age: 38 Year
  Sex: Male

DRUGS (5)
  1. CIPROFLOXACIN HEXAL [Suspect]
     Indication: PROSTATITIS
     Dosage: 1000 MG, QD
     Dates: start: 20121002, end: 20121025
  2. CIPROFLOXACIN SANDOZ [Suspect]
     Indication: URINARY TRACT INFECTION
     Dosage: 1000 MG, QD
     Dates: start: 20120920
  3. CIPROFLOXACIN ARROW [Suspect]
     Indication: URINARY TRACT INFECTION
     Dosage: 1000 MG, QD
     Route: 048
     Dates: start: 20120920
  4. PAROXETIN [Concomitant]
     Indication: DEPRESSION
     Dosage: UNK UKN, UNK
     Dates: start: 2004
  5. MIRTAZAPIN [Concomitant]
     Indication: INSOMNIA
     Dosage: UNK UKN, UNK
     Dates: start: 2004

REACTIONS (15)
  - Disturbance in attention [Not Recovered/Not Resolved]
  - Anxiety [Not Recovered/Not Resolved]
  - Back pain [Not Recovered/Not Resolved]
  - Coordination abnormal [Not Recovered/Not Resolved]
  - Depression [Not Recovered/Not Resolved]
  - Diarrhoea [Not Recovered/Not Resolved]
  - Somnolence [Not Recovered/Not Resolved]
  - Fatigue [Not Recovered/Not Resolved]
  - Insomnia [Not Recovered/Not Resolved]
  - Arthralgia [Not Recovered/Not Resolved]
  - Myalgia [Not Recovered/Not Resolved]
  - Muscular weakness [Not Recovered/Not Resolved]
  - Suicidal ideation [Not Recovered/Not Resolved]
  - Tinnitus [Not Recovered/Not Resolved]
  - Asthenia [Not Recovered/Not Resolved]
